FAERS Safety Report 10674336 (Version 1)
Quarter: 2014Q4

REPORT INFORMATION
  Report Type: Spontaneous
  Country: FR (occurrence: None)
  Receive Date: 20141222
  Receipt Date: 20141222
  Transmission Date: 20150529
  Serious: Yes (Hospitalization)
  Sender: FDA-Public Use
  Company Number: NSR_01733_2014

PATIENT
  Age: 35 Year
  Sex: Male

DRUGS (2)
  1. ALCOHOL. [Suspect]
     Active Substance: ALCOHOL
     Indication: PRODUCT USED FOR UNKNOWN INDICATION
     Dosage: DF
  2. BACLOFEN. [Suspect]
     Active Substance: BACLOFEN
     Indication: ALCOHOL USE
     Dosage: NOT THE PRESCRIBED AMOUNT

REACTIONS (10)
  - Withdrawal syndrome [None]
  - Alcohol use [None]
  - Delirium [None]
  - Coma scale abnormal [None]
  - Suicide attempt [None]
  - Nervous system disorder [None]
  - Lactic acidosis [None]
  - Hypoxia [None]
  - Rhabdomyolysis [None]
  - Intentional overdose [None]
